FAERS Safety Report 7379011-2 (Version None)
Quarter: 2011Q1

REPORT INFORMATION
  Report Type: 
  Country: None (occurrence: None)
  Receive Date: 20110328
  Receipt Date: 20110322
  Transmission Date: 20110831
  Serious: Yes (Life-Threatening, Other)
  Sender: FDA-Public Use
  Company Number: US-ASTRAZENECA-2011SE11382

PATIENT
  Age: 84 Year
  Sex: Male
  Weight: 69.4 kg

DRUGS (16)
  1. DOXAZOSIN [Concomitant]
  2. HUMALOG [Concomitant]
     Indication: HYPERGLYCAEMIA
     Dosage: 20U, THREE TIMES A DAY
  3. HUMALOG [Concomitant]
     Dosage: 20 UNITS AM
     Route: 058
  4. SYNTHROID [Concomitant]
  5. ASPIRIN [Concomitant]
  6. HUMALOG [Concomitant]
     Indication: DIABETES MELLITUS
     Dosage: 20U, THREE TIMES A DAY
  7. LASIX [Concomitant]
     Indication: OEDEMA
  8. HUMALOG [Concomitant]
     Dosage: 20 UNITS AM
     Route: 058
  9. LANTUS [Concomitant]
     Indication: DIABETES MELLITUS
  10. POTASSIUM CHLORIDE [Concomitant]
     Indication: HYPOKALAEMIA
  11. LISINOPRIL [Concomitant]
  12. ZETIA [Concomitant]
  13. OXAPROZIN [Concomitant]
  14. OMEPRAZOLE [Concomitant]
  15. CRESTOR [Suspect]
     Indication: HYPERCHOLESTEROLAEMIA
     Route: 048
     Dates: start: 20100917
  16. IRON [Concomitant]

REACTIONS (2)
  - LOSS OF CONSCIOUSNESS [None]
  - HYPOGLYCAEMIA [None]
